FAERS Safety Report 5075838-0 (Version None)
Quarter: 2006Q3

REPORT INFORMATION
  Report Type: 
  Country: None (occurrence: None)
  Receive Date: 20060807
  Receipt Date: 20060807
  Transmission Date: 20061208
  Serious: Yes (Hospitalization)
  Sender: FDA-Public Use
  Company Number: None

PATIENT
  Age: 42 Year
  Sex: Male
  Weight: 46.2669 kg

DRUGS (19)
  1. DOCETAXEL [Suspect]
     Indication: LIP AND/OR ORAL CAVITY CANCER
     Dosage: 45MG  QWK X 3 WKS  IV
     Route: 042
     Dates: start: 20051230
  2. DOCETAXEL [Suspect]
     Indication: LIP AND/OR ORAL CAVITY CANCER
     Dosage: 45MG  QWK X 3 WKS  IV
     Route: 042
     Dates: start: 20060106
  3. DOCETAXEL [Suspect]
     Indication: LIP AND/OR ORAL CAVITY CANCER
     Dosage: 45MG  QWK X 3 WKS  IV
     Route: 042
     Dates: start: 20060113
  4. DOCETAXEL [Suspect]
     Indication: LIP AND/OR ORAL CAVITY CANCER
     Dosage: 45MG  QWK X 3 WKS  IV
     Route: 042
     Dates: start: 20060127
  5. DOCETAXEL [Suspect]
     Indication: LIP AND/OR ORAL CAVITY CANCER
     Dosage: 45MG  QWK X 3 WKS  IV
     Route: 042
     Dates: start: 20060203
  6. DOCETAXEL [Suspect]
     Indication: LIP AND/OR ORAL CAVITY CANCER
     Dosage: 45MG  QWK X 3 WKS  IV
     Route: 042
     Dates: start: 20060303
  7. DOCETAXEL [Suspect]
     Indication: LIP AND/OR ORAL CAVITY CANCER
     Dosage: 45MG  QWK X 3 WKS  IV
     Route: 042
     Dates: start: 20060310
  8. DOCETAXEL [Suspect]
     Indication: LIP AND/OR ORAL CAVITY CANCER
     Dosage: 45MG  QWK X 3 WKS  IV
     Route: 042
     Dates: start: 20060318
  9. CARBOPLATIN [Suspect]
     Indication: LIP AND/OR ORAL CAVITY CANCER
     Dosage: 900MG  Q4 WKS   IV
     Route: 042
     Dates: start: 20051230
  10. CARBOPLATIN [Suspect]
     Indication: LIP AND/OR ORAL CAVITY CANCER
     Dosage: 900MG  Q4 WKS   IV
     Route: 042
     Dates: start: 20060127
  11. CARBOPLATIN [Suspect]
     Indication: LIP AND/OR ORAL CAVITY CANCER
     Dosage: 900MG  Q4 WKS   IV
     Route: 042
     Dates: start: 20060303
  12. IFOSFAMIDE [Suspect]
     Indication: LIP AND/OR ORAL CAVITY CANCER
     Dosage: 750MG  QWK X 3WKS  IV
     Route: 042
     Dates: start: 20051230
  13. IFOSFAMIDE [Suspect]
     Indication: LIP AND/OR ORAL CAVITY CANCER
     Dosage: 750MG  QWK X 3WKS  IV
     Route: 042
     Dates: start: 20060106
  14. IFOSFAMIDE [Suspect]
     Indication: LIP AND/OR ORAL CAVITY CANCER
     Dosage: 750MG  QWK X 3WKS  IV
     Route: 042
     Dates: start: 20060113
  15. IFOSFAMIDE [Suspect]
     Indication: LIP AND/OR ORAL CAVITY CANCER
     Dosage: 750MG  QWK X 3WKS  IV
     Route: 042
     Dates: start: 20060127
  16. IFOSFAMIDE [Suspect]
     Indication: LIP AND/OR ORAL CAVITY CANCER
     Dosage: 750MG  QWK X 3WKS  IV
     Route: 042
     Dates: start: 20060203
  17. IFOSFAMIDE [Suspect]
     Indication: LIP AND/OR ORAL CAVITY CANCER
     Dosage: 750MG  QWK X 3WKS  IV
     Route: 042
     Dates: start: 20060303
  18. IFOSFAMIDE [Suspect]
     Indication: LIP AND/OR ORAL CAVITY CANCER
     Dosage: 750MG  QWK X 3WKS  IV
     Route: 042
     Dates: start: 20060310
  19. IFOSFAMIDE [Suspect]
     Indication: LIP AND/OR ORAL CAVITY CANCER
     Dosage: 750MG  QWK X 3WKS  IV
     Route: 042
     Dates: start: 20060318

REACTIONS (10)
  - ANAEMIA [None]
  - DEHYDRATION [None]
  - DENTAL CARIES [None]
  - DYSPHAGIA [None]
  - FEEDING TUBE COMPLICATION [None]
  - HYPERCALCAEMIA [None]
  - ORAL INTAKE REDUCED [None]
  - ORAL PAIN [None]
  - THERAPY NON-RESPONDER [None]
  - TOOTH EXTRACTION [None]
